FAERS Safety Report 4566705-7 (Version None)
Quarter: 2005Q1

REPORT INFORMATION
  Report Type: 
  Country: None (occurrence: None)
  Receive Date: 20050201
  Receipt Date: 20010731
  Transmission Date: 20050727
  Serious: Yes (Other)
  Sender: FDA-Public Use
  Company Number: US-BRISTOL-MYERS SQUIBB COMPANY-10939049

PATIENT
  Sex: Female

DRUGS (6)
  1. STADOL [Suspect]
     Indication: MIGRAINE
     Route: 045
     Dates: start: 19920101
  2. AMITRIPTYLINE [Concomitant]
  3. BUTALBITAL + CAFFEINE + ACETAMINOPHEN [Concomitant]
  4. PHENERGAN [Concomitant]
  5. ULTRAM [Concomitant]
  6. HYDROCODONE + ACETAMINOPHEN [Concomitant]

REACTIONS (2)
  - CONVULSION [None]
  - DEPENDENCE [None]
